FAERS Safety Report 10076983 (Version 2)
Quarter: 2014Q2

REPORT INFORMATION
  Report Type: Spontaneous
  Country: DE (occurrence: DE)
  Receive Date: 20140414
  Receipt Date: 20140414
  Transmission Date: 20141212
  Serious: Yes (Hospitalization, Other)
  Sender: FDA-Public Use
  Company Number: DE-BAYER-2013-144725

PATIENT
  Age: 29 Year
  Sex: Female

DRUGS (1)
  1. BETAFERON [Suspect]
     Indication: MULTIPLE SCLEROSIS
     Dosage: 250 ?L, TIW
     Dates: start: 201301

REACTIONS (4)
  - Multiple sclerosis relapse [None]
  - Multiple sclerosis relapse [None]
  - Transaminases increased [Not Recovered/Not Resolved]
  - Chills [None]
